FAERS Safety Report 25216829 (Version 2)
Quarter: 2025Q2

REPORT INFORMATION
  Report Type: Spontaneous
  Country: US (occurrence: US)
  Receive Date: 20250419
  Receipt Date: 20250507
  Transmission Date: 20250716
  Serious: Yes (Life-Threatening, Hospitalization, Other)
  Sender: AUROBINDO
  Company Number: US-MLMSERVICE-20250331-PI462179-00201-1

PATIENT
  Age: 41 Year
  Sex: Male

DRUGS (1)
  1. LIDOCAINE [Suspect]
     Active Substance: LIDOCAINE
     Indication: Skin wound
     Route: 061

REACTIONS (12)
  - Local anaesthetic systemic toxicity [Recovering/Resolving]
  - Generalised tonic-clonic seizure [Recovered/Resolved]
  - Unresponsive to stimuli [Recovered/Resolved]
  - Status epilepticus [Recovered/Resolved]
  - Tachypnoea [Recovering/Resolving]
  - Blood pH decreased [Recovering/Resolving]
  - Bradycardia [Recovered/Resolved]
  - Postictal state [Recovered/Resolved]
  - Tachycardia [Recovered/Resolved]
  - Product use issue [Unknown]
  - Self-medication [Unknown]
  - Intentional product misuse [Unknown]
